FAERS Safety Report 5338321-0 (Version None)
Quarter: 2007Q2

REPORT INFORMATION
  Report Type: 
  Country: None (occurrence: None)
  Receive Date: 20070405
  Receipt Date: 20061116
  Transmission Date: 20071010
  Serious: No
  Sender: FDA-Public Use
  Company Number: US200611003941

PATIENT
  Age: 41 Year
  Sex: Female

DRUGS (4)
  1. CYMBALTA [Suspect]
     Indication: SCHIZOAFFECTIVE DISORDER
     Dosage: SEE IMAGE
  2. RISPERIDONE [Concomitant]
  3. DEPAKOTE [Concomitant]
  4. PROPRANOLOL [Concomitant]

REACTIONS (1)
  - HYPOMANIA [None]
